FAERS Safety Report 5133948-3 (Version None)
Quarter: 2006Q4

REPORT INFORMATION
  Report Type: 
  Country: None (occurrence: None)
  Receive Date: 20061018
  Receipt Date: 20061006
  Transmission Date: 20070319
  Serious: Yes (Hospitalization)
  Sender: FDA-Public Use
  Company Number: 2006BI014399

PATIENT
  Age: 35 Year
  Sex: Female

DRUGS (7)
  1. AVONEX [Suspect]
     Indication: MULTIPLE SCLEROSIS
     Dosage: 30 UG, QW; IM
     Route: 030
     Dates: start: 20060823
  2. COPAXONE [Concomitant]
  3. PROVIGIL [Concomitant]
  4. PERCOCET [Concomitant]
  5. MOTRIN [Concomitant]
  6. NEXIUM [Concomitant]
  7. FIORICET [Concomitant]

REACTIONS (4)
  - ANXIETY [None]
  - INJECTION SITE HAEMORRHAGE [None]
  - INSOMNIA [None]
  - PNEUMONIA [None]
